FAERS Safety Report 7036027-3 (Version None)
Quarter: 2010Q4

REPORT INFORMATION
  Report Type: 
  Country: None (occurrence: None)
  Receive Date: 20101008
  Receipt Date: 20100928
  Transmission Date: 20110411
  Serious: Yes (Other)
  Sender: FDA-Public Use
  Company Number: US-MYLANLABS-2010S1017965

PATIENT
  Age: 57 Year
  Sex: Female

DRUGS (1)
  1. EMSAM (SELEGILINE TRANSDERMAL SYSTEM) [Suspect]

REACTIONS (3)
  - ANXIETY [None]
  - MIGRAINE [None]
  - PARALYSIS [None]
